FAERS Safety Report 8791225 (Version 1)
Quarter: 2012Q4

REPORT INFORMATION
  Report Type: Spontaneous
  Country: GB (occurrence: None)
  Receive Date: 20120911
  Receipt Date: 20120911
  Transmission Date: 20130627
  Serious: Yes (Hospitalization)
  Sender: FDA-Public Use
  Company Number: FK201202602

PATIENT
  Age: 2 Year
  Sex: Male

DRUGS (8)
  1. CARBOPLATIN [Suspect]
     Indication: NEUROBLASTOMA
  2. CISPLATIN [Suspect]
  3. VINCRISTINE [Concomitant]
  4. CYCLOPHOSPHAMIDE (CYCLOPHOSPHAMIDE) [Concomitant]
  5. ETOPOSIDE (ETOPOSIDE [Concomitant]
  6. BUSULPHAN (BUSULPHAN) [Concomitant]
  7. MELPHALAN (MELPHALAN) [Concomitant]
  8. 13-CIS-RETINOIC ACID (ISOTRETINOIN) [Concomitant]

REACTIONS (5)
  - Renal tubular disorder [None]
  - Electrolyte imbalance [None]
  - Febrile neutropenia [None]
  - Hyponatraemia [None]
  - Hyperkalaemia [None]
